FAERS Safety Report 21359786 (Version 1)
Quarter: 2022Q3

REPORT INFORMATION
  Report Type: Spontaneous
  Country: JP (occurrence: JP)
  Receive Date: 20220921
  Receipt Date: 20220921
  Transmission Date: 20221027
  Serious: Yes (Other)
  Sender: FDA-Public Use
  Company Number: JP-MSD-M2022-36432

PATIENT
  Age: 96 Year

DRUGS (4)
  1. CUBICIN [Suspect]
     Active Substance: DAPTOMYCIN
     Indication: Staphylococcal infection
     Dosage: 350 MILLIGRAM, QD
     Route: 041
     Dates: start: 20220826, end: 20220828
  2. CUBICIN [Suspect]
     Active Substance: DAPTOMYCIN
     Indication: Skin infection
     Dosage: UNK
     Route: 041
     Dates: start: 20220830, end: 202209
  3. VANCOMYCIN HYDROCHLORIDE [Concomitant]
     Active Substance: VANCOMYCIN HYDROCHLORIDE
     Indication: Skin infection
     Dosage: UNK
     Route: 065
  4. VANCOMYCIN HYDROCHLORIDE [Concomitant]
     Active Substance: VANCOMYCIN HYDROCHLORIDE
     Indication: Staphylococcal infection

REACTIONS (4)
  - Pneumonia [Unknown]
  - Hepatic function abnormal [Recovering/Resolving]
  - C-reactive protein increased [Recovering/Resolving]
  - Accidental overdose [Unknown]

NARRATIVE: CASE EVENT DATE: 20220826
